FAERS Safety Report 21301369 (Version 1)
Quarter: 2022Q3

REPORT INFORMATION
  Report Type: Spontaneous
  Country: US (occurrence: US)
  Receive Date: 20220907
  Receipt Date: 20220907
  Transmission Date: 20221026
  Serious: No
  Sender: FDA-Public Use
  Company Number: US-Accord-236951

PATIENT
  Sex: Female
  Weight: 60.78 kg

DRUGS (4)
  1. EPLERENONE [Suspect]
     Active Substance: EPLERENONE
     Indication: Hypertension
     Dosage: STRENGTH: 25 MG?ONCE A DAY
     Route: 048
     Dates: start: 202106
  2. CRESTOR [Concomitant]
     Active Substance: ROSUVASTATIN CALCIUM
     Dosage: 5MG/ORAL/EVERY OTHER DAY
     Route: 048
  3. WARFARIN [Concomitant]
     Active Substance: WARFARIN
  4. LOSARTAN [Concomitant]
     Active Substance: LOSARTAN
     Dosage: 50MG/ORAL/TWICE A DAY
     Route: 048

REACTIONS (6)
  - Cold sweat [Not Recovered/Not Resolved]
  - Feeling cold [Not Recovered/Not Resolved]
  - Breast pain [Not Recovered/Not Resolved]
  - Breast enlargement [Not Recovered/Not Resolved]
  - Product dispensing error [Unknown]
  - Product substitution issue [Unknown]
